FAERS Safety Report 15317944 (Version 1)
Quarter: 2018Q3

REPORT INFORMATION
  Report Type: Spontaneous
  Country: US (occurrence: US)
  Receive Date: 20180817
  Receipt Date: 20180817
  Transmission Date: 20181010
  Serious: Yes (Hospitalization)
  Sender: FDA-Public Use
  Company Number: None

PATIENT
  Age: 20 Year
  Sex: Female
  Weight: 65.77 kg

DRUGS (7)
  1. NEXPLANON [Suspect]
     Active Substance: ETONOGESTREL
     Dates: start: 20160729, end: 20170822
  2. LEXAPRO [Concomitant]
     Active Substance: ESCITALOPRAM OXALATE
  3. VITAMIN C [Concomitant]
     Active Substance: ASCORBIC ACID
  4. IRON [Concomitant]
     Active Substance: IRON
  5. WOMENS MULTIVITAMIN [Concomitant]
  6. NUVARING [Concomitant]
     Active Substance: ETHINYL ESTRADIOL\ETONOGESTREL
  7. FOLIC ACID. [Concomitant]
     Active Substance: FOLIC ACID

REACTIONS (11)
  - Menorrhagia [None]
  - Contusion [None]
  - Anger [None]
  - Metrorrhagia [None]
  - Complication of device removal [None]
  - Procedural pain [None]
  - Mania [None]
  - Weight increased [None]
  - Skin implant removal [None]
  - Mood swings [None]
  - Device dislocation [None]

NARRATIVE: CASE EVENT DATE: 20170822
